FAERS Safety Report 23520678 (Version 1)
Quarter: 2024Q1

REPORT INFORMATION
  Report Type: Spontaneous
  Country: None (occurrence: None)
  Receive Date: 20240214
  Receipt Date: 20240214
  Transmission Date: 20240410
  Serious: No
  Sender: FDA-Public Use
  Company Number: CA-ROCHE-3149785

PATIENT

DRUGS (4)
  1. OCRELIZUMAB [Suspect]
     Active Substance: OCRELIZUMAB
  2. BACLOFEN [Suspect]
     Active Substance: BACLOFEN
  3. VAXZEVRIA [Suspect]
     Active Substance: AZD-1222
  4. AMOXICILLIN [Concomitant]
     Active Substance: AMOXICILLIN

REACTIONS (15)
  - Balance disorder [None]
  - Clumsiness [None]
  - Cystitis [None]
  - Fall [None]
  - Fatigue [None]
  - Gait disturbance [None]
  - Hypersomnia [None]
  - Nasal disorder [None]
  - Stress fracture [None]
  - Urinary tract infection [None]
  - Feeling abnormal [None]
  - Immunosuppression [None]
  - Muscle disorder [None]
  - Pain in extremity [None]
  - Poor quality sleep [None]
